FAERS Safety Report 20716360 (Version 1)
Quarter: 2022Q2

REPORT INFORMATION
  Report Type: Spontaneous
  Country: CN (occurrence: CN)
  Receive Date: 20220416
  Receipt Date: 20220416
  Transmission Date: 20220720
  Serious: Yes (Other)
  Sender: FDA-Public Use
  Company Number: CN-AUROBINDO-AUR-APL-2022-013212

PATIENT
  Age: 58 Year
  Sex: Male
  Weight: 61.8 kg

DRUGS (1)
  1. EVOMELA [Suspect]
     Active Substance: MELPHALAN HYDROCHLORIDE
     Indication: Autologous haematopoietic stem cell transplant
     Dosage: 100 MILLIGRAM, ONCE A DAY
     Route: 041
     Dates: start: 20211115, end: 20211120

REACTIONS (4)
  - Leukoplakia oral [Unknown]
  - Stomatitis [Unknown]
  - Incorrect dosage administered [Unknown]
  - Product use in unapproved indication [Unknown]

NARRATIVE: CASE EVENT DATE: 20211129
